FAERS Safety Report 24029996 (Version 2)
Quarter: 2024Q3

REPORT INFORMATION
  Report Type: Spontaneous
  Country: DE (occurrence: None)
  Receive Date: 20240628
  Receipt Date: 20240723
  Transmission Date: 20241017
  Serious: Yes (Other)
  Sender: ASTRAZENECA
  Company Number: 2024A146778

PATIENT
  Sex: Male

DRUGS (3)
  1. FASENRA [Suspect]
     Active Substance: BENRALIZUMAB
     Route: 058
     Dates: start: 20190204
  2. DUPILUMAB [Concomitant]
     Active Substance: DUPILUMAB
     Dates: start: 202404
  3. TEZEPELUMAB [Concomitant]
     Active Substance: TEZEPELUMAB
     Dates: start: 202405

REACTIONS (4)
  - Chronic lymphocytic leukaemia [Unknown]
  - Obstructive sleep apnoea syndrome [Unknown]
  - Pneumonia [Unknown]
  - COVID-19 [Unknown]
